FAERS Safety Report 16140728 (Version 1)
Quarter: 2019Q2

REPORT INFORMATION
  Report Type: Spontaneous
  Country: US (occurrence: US)
  Receive Date: 20190329
  Receipt Date: 20190329
  Transmission Date: 20190711
  Serious: Yes (Other)
  Sender: FDA-Public Use
  Company Number: None

PATIENT
  Age: 66 Year
  Sex: Female
  Weight: 68.85 kg

DRUGS (11)
  1. HYDROCODONE [Concomitant]
     Active Substance: HYDROCODONE
  2. COENZYME Q10 [Concomitant]
     Active Substance: UBIDECARENONE
  3. FISH OIL CAPSULE DAILY [Concomitant]
  4. GEMFIBROZIL. [Concomitant]
     Active Substance: GEMFIBROZIL
  5. 81 MG ASPRIN [Concomitant]
  6. CALCIUM 1200 MG [Concomitant]
  7. BUPROPION HCL SR 150 MG TABLET [Suspect]
     Active Substance: BUPROPION HYDROCHLORIDE
     Indication: ANXIETY
     Dosage: ?          QUANTITY:60 TABLET(S);?
     Route: 048
     Dates: start: 20190308, end: 20190328
  8. LISINOPRIL. [Concomitant]
     Active Substance: LISINOPRIL
  9. CLONIDINE. [Concomitant]
     Active Substance: CLONIDINE
  10. METOPROLOL. [Concomitant]
     Active Substance: METOPROLOL
  11. PRAVASTATIN. [Concomitant]
     Active Substance: PRAVASTATIN

REACTIONS (1)
  - Flatulence [None]

NARRATIVE: CASE EVENT DATE: 20190325
